FAERS Safety Report 23858666 (Version 2)
Quarter: 2024Q2

REPORT INFORMATION
  Report Type: Spontaneous
  Country: US (occurrence: US)
  Receive Date: 20240515
  Receipt Date: 20240628
  Transmission Date: 20240715
  Serious: Yes (Hospitalization, Other)
  Sender: FDA-Public Use
  Company Number: US-PHARMING-PHAUS2024000383

PATIENT

DRUGS (2)
  1. RUCONEST [Suspect]
     Active Substance: CONESTAT ALFA
     Indication: Hereditary angioedema
     Dosage: 2100 IU, TWO TIMES WEEKLY AND AS NEEDED; NO MORE THAN TWO DOSES WITHIN 24-HOUR PERIOD
     Route: 042
     Dates: start: 202305
  2. RUCONEST [Suspect]
     Active Substance: CONESTAT ALFA
     Dosage: 2100 IU, TWICE WEEKLY
     Route: 042
     Dates: start: 202305

REACTIONS (4)
  - Colitis [Unknown]
  - Weight decreased [Unknown]
  - Underdose [Unknown]
  - Intentional product use issue [Unknown]
